FAERS Safety Report 4865896-8 (Version None)
Quarter: 2005Q4

REPORT INFORMATION
  Report Type: 
  Country: None (occurrence: None)
  Receive Date: 20051223
  Receipt Date: 20050725
  Transmission Date: 20060501
  Serious: Yes (Other)
  Sender: FDA-Public Use
  Company Number: PHBS2005JP11022

PATIENT
  Sex: Male

DRUGS (12)
  1. LAMISIL [Suspect]
     Indication: NAIL TINEA
     Dosage: UNK, UNK
     Route: 048
     Dates: start: 20050704, end: 20050717
  2. RONLAX [Concomitant]
     Route: 048
  3. FLIVAS [Concomitant]
     Route: 048
  4. CERCINE [Concomitant]
     Route: 048
  5. SERMION [Concomitant]
     Route: 048
  6. GANATON [Concomitant]
     Route: 048
  7. LORELCO [Concomitant]
  8. NICARDIPINE HCL [Concomitant]
     Route: 048
  9. LOWGAN [Concomitant]
     Route: 048
  10. ACECOL [Concomitant]
     Route: 048
  11. ZYLORIC [Concomitant]
     Route: 048
  12. LAMISIL [Concomitant]
     Route: 061

REACTIONS (3)
  - DYSURIA [None]
  - URETERAL CATHETERISATION [None]
  - URINARY RETENTION [None]
